FAERS Safety Report 7888341-7 (Version None)
Quarter: 2011Q4

REPORT INFORMATION
  Report Type: 
  Country: None (occurrence: None)
  Receive Date: 20111101
  Receipt Date: 20111029
  Transmission Date: 20120403
  Serious: No
  Sender: FDA-Public Use
  Company Number: 2011-01304

PATIENT
  Age: 63 Year
  Sex: Female
  Weight: 79.3795 kg

DRUGS (1)
  1. ZICAM EXTREME CONGESTION RELIEF [Suspect]
     Indication: INFLUENZA LIKE ILLNESS
     Dosage: 4X DAY, 2 DAYS IN MAR 2011
     Dates: start: 20110301

REACTIONS (4)
  - NASAL DISORDER [None]
  - TENDERNESS [None]
  - DYSGEUSIA [None]
  - ANOSMIA [None]
